FAERS Safety Report 4367544-2 (Version None)
Quarter: 2004Q2

REPORT INFORMATION
  Report Type: 
  Country: None (occurrence: None)
  Receive Date: 20040601
  Receipt Date: 20040519
  Transmission Date: 20050107
  Serious: Yes (Life-Threatening)
  Sender: FDA-Public Use
  Company Number: GB-MERCK-0405GBR00150

PATIENT
  Age: 87 Year
  Sex: Female
  Weight: 47 kg

DRUGS (3)
  1. FOSAMAX [Suspect]
     Indication: OSTEOPOROSIS
     Route: 048
     Dates: start: 20021110, end: 20040505
  2. CALCIUM CARBONATE AND CHOLECALCIFEROL [Concomitant]
     Indication: BONE DISORDER
     Route: 048
     Dates: start: 20021110
  3. TAMOXIFEN CITRATE [Concomitant]
     Indication: BREAST CANCER
     Route: 048
     Dates: start: 19950801

REACTIONS (2)
  - IRON DEFICIENCY ANAEMIA [None]
  - OESOPHAGITIS [None]
